FAERS Safety Report 20670022 (Version 1)
Quarter: 2022Q2

REPORT INFORMATION
  Report Type: Spontaneous
  Country: LB (occurrence: LB)
  Receive Date: 20220404
  Receipt Date: 20220404
  Transmission Date: 20220721
  Serious: Yes (Death, Hospitalization, Other)
  Sender: FDA-Public Use
  Company Number: LB-PFIZER INC-2021226546

PATIENT
  Sex: Female

DRUGS (5)
  1. TOZINAMERAN [Suspect]
     Active Substance: TOZINAMERAN
     Indication: COVID-19 immunisation
     Dosage: DOSE NUMBER UNKNOWN, SINGLE
     Dates: start: 202104, end: 202104
  2. IBRANCE [Suspect]
     Active Substance: PALBOCICLIB
     Indication: Breast cancer metastatic
     Dosage: 125 MG, CYCLIC (1X/DAY FOR 21 DAYS EVERY 28 DAYS)
     Route: 048
     Dates: start: 201907, end: 202111
  3. FEMARA [Concomitant]
     Active Substance: LETROZOLE
     Indication: Breast cancer metastatic
     Dosage: 2.5 MG, 1X/DAY (FOR 28 DAYS)
  4. ZOMETA [Concomitant]
     Active Substance: ZOLEDRONIC ACID
     Dosage: 4 MG
     Route: 042
  5. LETROZOLE [Concomitant]
     Active Substance: LETROZOLE
     Dosage: 2.5 MG, CYCLIC: OD FOR 28 DAYS

REACTIONS (4)
  - Neoplasm progression [Fatal]
  - Drug ineffective [Unknown]
  - Suspected COVID-19 [Unknown]
  - Product administration interrupted [Unknown]
